FAERS Safety Report 11635945 (Version 1)
Quarter: 2015Q4

REPORT INFORMATION
  Report Type: Spontaneous
  Country: US (occurrence: None)
  Receive Date: 20151015
  Receipt Date: 20151015
  Transmission Date: 20160304
  Serious: No
  Sender: FDA-Public Use
  Company Number: None

PATIENT
  Age: 26 Year
  Sex: Male

DRUGS (3)
  1. CAYSTON [Concomitant]
     Active Substance: AZTREONAM
  2. TOBRAMYCIN. [Suspect]
     Active Substance: TOBRAMYCIN
     Indication: CYSTIC FIBROSIS
     Dosage: NEB
     Dates: start: 20150729
  3. HYPERSAL [Concomitant]

REACTIONS (2)
  - Pharyngitis [None]
  - Lung infection [None]

NARRATIVE: CASE EVENT DATE: 20150925
